FAERS Safety Report 9356133 (Version 1)
Quarter: 2013Q2

REPORT INFORMATION
  Report Type: Spontaneous
  Country: US (occurrence: US)
  Receive Date: 20130619
  Receipt Date: 20130619
  Transmission Date: 20140414
  Serious: Yes (Other)
  Sender: FDA-Public Use
  Company Number: US-GLAXOSMITHKLINE-A0790018A

PATIENT
  Age: 50 Year
  Sex: Female
  Weight: 90.9 kg

DRUGS (1)
  1. AVANDIA [Suspect]
     Indication: DIABETES MELLITUS
     Route: 048
     Dates: end: 20070801

REACTIONS (4)
  - Cerebrovascular accident [Unknown]
  - Visual impairment [Unknown]
  - Cardiovascular disorder [Unknown]
  - Cardiac disorder [Unknown]
